FAERS Safety Report 7884903-1 (Version None)
Quarter: 2011Q4

REPORT INFORMATION
  Report Type: 
  Country: None (occurrence: None)
  Receive Date: 20111102
  Receipt Date: 20111026
  Transmission Date: 20120403
  Serious: Yes (Other)
  Sender: FDA-Public Use
  Company Number: DE-UCBSA-035870

PATIENT
  Age: 51 Year
  Sex: Male
  Weight: 95 kg

DRUGS (10)
  1. CIMZIA [Suspect]
     Indication: RHEUMATOID ARTHRITIS
     Route: 058
     Dates: start: 20101220
  2. CETIRIZINE HCL [Concomitant]
     Indication: HYPERSENSITIVITY
     Dosage: SINCE BEFORE 2003
     Route: 048
  3. BISOPROLOL [Concomitant]
     Route: 048
     Dates: start: 20100701
  4. PREDNISOLONE [Concomitant]
     Indication: RHEUMATOID ARTHRITIS
     Route: 048
     Dates: start: 20101101
  5. CA D3 [Concomitant]
     Indication: OSTEOPOROSIS PROPHYLAXIS
     Dosage: 1000/800 MG, IE, DAILY
     Route: 048
     Dates: start: 20030101
  6. IBUPROFEN [Concomitant]
     Indication: RHEUMATOID ARTHRITIS
     Route: 048
     Dates: start: 20030101
  7. RAMIPRIL [Concomitant]
     Indication: HYPERTENSION
     Route: 048
     Dates: start: 20100701
  8. PREDNISOLONE [Concomitant]
     Route: 048
     Dates: start: 20030101
  9. ARAVA [Concomitant]
     Indication: RHEUMATOID ARTHRITIS
     Dosage: DAILY
     Route: 048
     Dates: start: 20050401
  10. CETIRIZINE HCL [Concomitant]
     Indication: URTICARIA
     Dosage: SINCE BEFORE 2003
     Route: 048

REACTIONS (1)
  - TYPE 2 DIABETES MELLITUS [None]
